FAERS Safety Report 25190901 (Version 1)
Quarter: 2025Q2

REPORT INFORMATION
  Report Type: Spontaneous
  Country: FR (occurrence: FR)
  Receive Date: 20250411
  Receipt Date: 20250411
  Transmission Date: 20250716
  Serious: Yes (Other)
  Sender: MYLAN
  Company Number: None

PATIENT
  Age: 53 Year
  Sex: Female

DRUGS (2)
  1. ALPRAZOLAM [Suspect]
     Active Substance: ALPRAZOLAM
     Indication: Product used for unknown indication
     Dosage: UNK UNK, QD (BETWEEN 1 G AND 1.25 G/DAY )
     Dates: start: 2021
  2. TRIMEPRAZINE [Suspect]
     Active Substance: TRIMEPRAZINE
     Indication: Product used for unknown indication
     Dosage: UNK UNK, QD (45 DROPS/DAY - 50 DROPS/DAY)
     Dates: start: 2015

REACTIONS (1)
  - Drug use disorder [Not Recovered/Not Resolved]
